FAERS Safety Report 14381933 (Version 1)
Quarter: 2018Q1

REPORT INFORMATION
  Report Type: Spontaneous
  Country: US (occurrence: US)
  Receive Date: 20180111
  Receipt Date: 20180111
  Transmission Date: 20180509
  Serious: Yes (Other)
  Sender: FDA-Public Use
  Company Number: None

PATIENT
  Age: 53 Year
  Sex: Male
  Weight: 67.86 kg

DRUGS (1)
  1. CEFEPIME [Suspect]
     Active Substance: CEFEPIME HYDROCHLORIDE
     Indication: OSTEOMYELITIS
     Route: 041
     Dates: start: 20171208, end: 20171227

REACTIONS (1)
  - Rash [None]

NARRATIVE: CASE EVENT DATE: 20180103
